FAERS Safety Report 5633423-3 (Version None)
Quarter: 2008Q1

REPORT INFORMATION
  Report Type: 
  Country: None (occurrence: None)
  Receive Date: 20080221
  Receipt Date: 20080208
  Transmission Date: 20080703
  Serious: Yes (Other)
  Sender: FDA-Public Use
  Company Number: BR-ROCHE-547446

PATIENT
  Age: 50 Year
  Sex: Female

DRUGS (2)
  1. NAPROSYN [Suspect]
     Dosage: DOSAGE: ONE OR TWO TABLETS PER DAY.
     Route: 048
     Dates: start: 20070101
  2. UNSPECIFIED DRUG [Concomitant]
     Indication: HYPERTENSION

REACTIONS (1)
  - AMNESIA [None]
